FAERS Safety Report 10725000 (Version 1)
Quarter: 2015Q1

REPORT INFORMATION
  Report Type: Spontaneous
  Country: CA (occurrence: CA)
  Receive Date: 20150120
  Receipt Date: 20150120
  Transmission Date: 20150721
  Serious: Yes (Other)
  Sender: FDA-Public Use
  Company Number: CA-B.I. PHARMACEUTICALS,INC./RIDGEFIELD-2015-BI-02261CN

PATIENT
  Age: 64 Year
  Sex: Female
  Weight: 65.77 kg

DRUGS (2)
  1. ASA [Concomitant]
     Active Substance: ASPIRIN
     Indication: PRODUCT USED FOR UNKNOWN INDICATION
     Route: 065
  2. TWYNSTA [Suspect]
     Active Substance: AMLODIPINE BESYLATE\TELMISARTAN
     Indication: HYPERTENSION
     Dosage: 1 ANZ
     Route: 048

REACTIONS (9)
  - Dizziness [Unknown]
  - Dyspnoea [Unknown]
  - Skin tightness [Unknown]
  - Oedema peripheral [Unknown]
  - Palpitations [Unknown]
  - Chest discomfort [Unknown]
  - Hyperhidrosis [Unknown]
  - Chest pain [Unknown]
  - Nausea [Unknown]
